FAERS Safety Report 13175455 (Version 2)
Quarter: 2017Q1

REPORT INFORMATION
  Report Type: Report from Study
  Country: CA (occurrence: CA)
  Receive Date: 20170201
  Receipt Date: 20170328
  Transmission Date: 20170428
  Serious: Yes (Other)
  Sender: FDA-Public Use
  Company Number: CA-JNJFOC-20160822089

PATIENT
  Age: 17 Year
  Sex: Female
  Weight: 55.5 kg

DRUGS (4)
  1. REMICADE [Suspect]
     Active Substance: INFLIXIMAB
     Indication: CROHN^S DISEASE
     Route: 042
     Dates: start: 20150815
  2. SOLU-CORTEF [Concomitant]
     Active Substance: HYDROCORTISONE SODIUM SUCCINATE
     Route: 065
  3. REMICADE [Suspect]
     Active Substance: INFLIXIMAB
     Indication: CROHN^S DISEASE
     Route: 042
     Dates: start: 20150528
  4. REMICADE [Suspect]
     Active Substance: INFLIXIMAB
     Indication: CROHN^S DISEASE
     Route: 042
     Dates: start: 20170123

REACTIONS (10)
  - Off label use [Unknown]
  - Haematochezia [Unknown]
  - Exposure during pregnancy [Recovered/Resolved]
  - Diarrhoea [Unknown]
  - Pyrexia [Unknown]
  - Caesarean section [Unknown]
  - Feeling of body temperature change [Unknown]
  - Inappropriate schedule of drug administration [Unknown]
  - Premature delivery [Unknown]
  - Product use issue [Unknown]

NARRATIVE: CASE EVENT DATE: 20150528
